FAERS Safety Report 20042393 (Version 1)
Quarter: 2021Q4

REPORT INFORMATION
  Report Type: Spontaneous
  Country: US (occurrence: US)
  Receive Date: 20211108
  Receipt Date: 20211108
  Transmission Date: 20220303
  Serious: No
  Sender: FDA-Public Use
  Company Number: US-SA-SAC20211102001115

PATIENT
  Age: 51 Year
  Sex: Female

DRUGS (2)
  1. DUPIXENT [Suspect]
     Active Substance: DUPILUMAB
     Indication: Dermatitis atopic
     Dosage: 300 MG, QOW
     Route: 058
     Dates: start: 202102
  2. OTEZLA [Suspect]
     Active Substance: APREMILAST

REACTIONS (4)
  - Pruritus [Unknown]
  - Burning sensation [Unknown]
  - Pain [Unknown]
  - Rash [Unknown]

NARRATIVE: CASE EVENT DATE: 20210101
